FAERS Safety Report 4324788-3 (Version None)
Quarter: 2004Q1

REPORT INFORMATION
  Report Type: 
  Country: None (occurrence: None)
  Receive Date: 20040326
  Receipt Date: 20040324
  Transmission Date: 20041129
  Serious: Yes (Hospitalization)
  Sender: FDA-Public Use
  Company Number: US-GLAXOSMITHKLINE-A0504316A

PATIENT
  Age: 48 Year
  Sex: Female

DRUGS (9)
  1. WELLBUTRIN [Suspect]
     Indication: DIABETIC NEUROPATHY
     Route: 048
     Dates: end: 20040101
  2. WELLBUTRIN [Suspect]
     Dosage: 150MG PER DAY
  3. REGLAN [Concomitant]
  4. TRENTAL [Concomitant]
  5. ALPHA LIPOIC ACID [Concomitant]
  6. CHROMIUM PICOLINATE [Concomitant]
  7. CARBAMAZEPINE [Concomitant]
  8. EVENING PRIMROSE OIL [Concomitant]
  9. INSULIN [Concomitant]

REACTIONS (4)
  - ANXIETY [None]
  - DIABETES MELLITUS INADEQUATE CONTROL [None]
  - INSOMNIA [None]
  - MEDICATION ERROR [None]
